FAERS Safety Report 18318449 (Version 1)
Quarter: 2020Q3

REPORT INFORMATION
  Report Type: Spontaneous
  Country: US (occurrence: US)
  Receive Date: 20200925
  Receipt Date: 20200925
  Transmission Date: 20201103
  Serious: Yes (Hospitalization)
  Sender: FDA-Public Use
  Company Number: None

PATIENT
  Age: 53 Year
  Sex: Female

DRUGS (14)
  1. CETIRIZINE [Concomitant]
     Active Substance: CETIRIZINE HYDROCHLORIDE
  2. GABAPENTIN. [Concomitant]
     Active Substance: GABAPENTIN
  3. PRAVASTATIN. [Concomitant]
     Active Substance: PRAVASTATIN
  4. FLOVENT [Concomitant]
     Active Substance: FLUTICASONE PROPIONATE
  5. ESBRIET [Suspect]
     Active Substance: PIRFENIDONE
     Indication: IDIOPATHIC PULMONARY FIBROSIS
     Route: 048
     Dates: start: 20190709
  6. PAZEO [Concomitant]
     Active Substance: OLOPATADINE HYDROCHLORIDE
  7. LANTUS [Concomitant]
     Active Substance: INSULIN GLARGINE
  8. ROPINIROLE. [Concomitant]
     Active Substance: ROPINIROLE
  9. PREDNISONE. [Concomitant]
     Active Substance: PREDNISONE
  10. DICOFENAC [Concomitant]
  11. LORAZEPAM. [Concomitant]
     Active Substance: LORAZEPAM
  12. BEVESPI AEROSPHERE [Concomitant]
     Active Substance: FORMOTEROL FUMARATE\GLYCOPYRROLATE
  13. STILTO [Concomitant]
  14. TRUPLUS [Concomitant]

REACTIONS (2)
  - Dyspnoea [None]
  - Fatigue [None]

NARRATIVE: CASE EVENT DATE: 202008
